FAERS Safety Report 8048629-6 (Version None)
Quarter: 2012Q1

REPORT INFORMATION
  Report Type: 
  Country: None (occurrence: None)
  Receive Date: 20120117
  Receipt Date: 20120110
  Transmission Date: 20120608
  Serious: Yes (Other)
  Sender: FDA-Public Use
  Company Number: US-BAYER-2012-003405

PATIENT
  Age: 42 Year
  Sex: Female

DRUGS (3)
  1. YAZ [Suspect]
     Dosage: UNK
     Route: 048
     Dates: start: 20050201, end: 20090101
  2. DROSPIRENONE AND ETHINYL ESTRADIOL [Suspect]
     Dosage: UNK
     Route: 048
     Dates: start: 20050201, end: 20090101
  3. YASMIN [Suspect]
     Dosage: UNK
     Route: 048
     Dates: start: 20050201, end: 20090101

REACTIONS (8)
  - INJURY [None]
  - EMOTIONAL DISTRESS [None]
  - CHOLECYSTECTOMY [None]
  - RENAL IMPAIRMENT [None]
  - PAIN [None]
  - PSYCHOLOGICAL TRAUMA [None]
  - ANXIETY [None]
  - FEAR [None]
